FAERS Safety Report 14257784 (Version 1)
Quarter: 2017Q4

REPORT INFORMATION
  Report Type: Report from Study
  Country: None (occurrence: GB)
  Receive Date: 20171207
  Receipt Date: 20171207
  Transmission Date: 20180321
  Serious: Yes (Other)
  Sender: FDA-Public Use
  Company Number: GB-ABBVIE-17K-167-2183584-00

PATIENT
  Age: 43 Year
  Sex: Male

DRUGS (2)
  1. HUMIRA [Suspect]
     Active Substance: ADALIMUMAB
     Dosage: SECOND INJECTION
     Route: 058
     Dates: start: 20171120, end: 20171120
  2. HUMIRA [Suspect]
     Active Substance: ADALIMUMAB
     Indication: CROHN^S DISEASE
     Route: 058
     Dates: start: 20171106, end: 20171106

REACTIONS (3)
  - Suicide attempt [Unknown]
  - Depressed mood [Not Recovered/Not Resolved]
  - Intentional overdose [Unknown]

NARRATIVE: CASE EVENT DATE: 201711
